FAERS Safety Report 7481771-7 (Version None)
Quarter: 2011Q2

REPORT INFORMATION
  Report Type: 
  Country: None (occurrence: None)
  Receive Date: 20110516
  Receipt Date: 20110510
  Transmission Date: 20111010
  Serious: Yes (Hospitalization)
  Sender: FDA-Public Use
  Company Number: Z0008580C

PATIENT
  Sex: Male
  Weight: 60.5 kg

DRUGS (1)
  1. LEUKERAN [Suspect]
     Dosage: 10MGM2 PER DAY
     Route: 048
     Dates: start: 20110308

REACTIONS (2)
  - NEUTROPENIA [None]
  - PNEUMONIA [None]
